FAERS Safety Report 6479999-8 (Version None)
Quarter: 2009Q4

REPORT INFORMATION
  Report Type: 
  Country: None (occurrence: None)
  Receive Date: 20091208
  Receipt Date: 20091119
  Transmission Date: 20100525
  Serious: Yes (Other)
  Sender: FDA-Public Use
  Company Number: US-SANOFI-AVENTIS-2009SA005933

PATIENT
  Sex: Male

DRUGS (3)
  1. LOVENOX [Suspect]
  2. HEPARIN [Concomitant]
  3. HUMALOG [Concomitant]
     Indication: TYPE 2 DIABETES MELLITUS

REACTIONS (2)
  - ANGINA PECTORIS [None]
  - LABORATORY TEST ABNORMAL [None]
